FAERS Safety Report 25957631 (Version 1)
Quarter: 2025Q4

REPORT INFORMATION
  Report Type: Report from Study
  Country: US (occurrence: US)
  Receive Date: 20251024
  Receipt Date: 20251024
  Transmission Date: 20260118
  Serious: Yes (Hospitalization, Other)
  Sender: TAKEDA
  Company Number: US-TAKEDA-2025TUS080744

PATIENT
  Age: 27 Year
  Sex: Female

DRUGS (3)
  1. PONATINIB [Suspect]
     Active Substance: PONATINIB
     Indication: Chronic myeloid leukaemia
     Dosage: 30 MILLIGRAM, QD
  2. PONATINIB [Suspect]
     Active Substance: PONATINIB
     Dosage: 30 MILLIGRAM, QD
  3. PONATINIB [Suspect]
     Active Substance: PONATINIB
     Dosage: 30 MILLIGRAM, QD

REACTIONS (10)
  - Full blood count decreased [Unknown]
  - Thrombosis [Unknown]
  - Blister [Unknown]
  - Feeling abnormal [Unknown]
  - Cold sweat [Unknown]
  - Product use issue [Unknown]
  - Epistaxis [Unknown]
  - Haemorrhage [Unknown]
  - Headache [Unknown]
  - Influenza like illness [Unknown]
